FAERS Safety Report 9335409 (Version 1)
Quarter: 2013Q2

REPORT INFORMATION
  Report Type: Spontaneous
  Country: US (occurrence: US)
  Receive Date: 20130605
  Receipt Date: 20130605
  Transmission Date: 20140414
  Serious: No
  Sender: FDA-Public Use
  Company Number: US-TEVA-410398USA

PATIENT
  Sex: Female
  Weight: 74.91 kg

DRUGS (3)
  1. PLAN B ONE-STEP [Suspect]
     Indication: POST COITAL CONTRACEPTION
     Route: 048
     Dates: start: 20130524, end: 20130524
  2. NUVARING [Suspect]
     Indication: CONTRACEPTION
     Dates: start: 20130407
  3. IRON [Concomitant]

REACTIONS (1)
  - Menstruation irregular [Not Recovered/Not Resolved]
